FAERS Safety Report 4874153-5 (Version None)
Quarter: 2006Q1

REPORT INFORMATION
  Report Type: 
  Country: None (occurrence: None)
  Receive Date: 20060106
  Receipt Date: 20051104
  Transmission Date: 20060701
  Serious: Yes (Hospitalization)
  Sender: FDA-Public Use
  Company Number: ES-GLAXOSMITHKLINE-B0399703A

PATIENT
  Age: 69 Year
  Sex: Female

DRUGS (1)
  1. AUGMENTIN '125' [Suspect]
     Indication: TONSILLITIS
     Route: 048
     Dates: start: 20051007, end: 20051010

REACTIONS (5)
  - ACHOLIA [None]
  - CHOLESTASIS [None]
  - CHOLURIA [None]
  - PRURITUS GENERALISED [None]
  - TRANSAMINASES INCREASED [None]
